FAERS Safety Report 18409724 (Version 1)
Quarter: 2020Q4

REPORT INFORMATION
  Report Type: Spontaneous
  Country: US (occurrence: US)
  Receive Date: 20201021
  Receipt Date: 20201021
  Transmission Date: 20210114
  Serious: Yes (Life-Threatening)
  Sender: FDA-Public Use
  Company Number: US-ELI_LILLY_AND_COMPANY-US90121924A

PATIENT
  Age: 10 Year
  Sex: Female

DRUGS (1)
  1. PROZAC [Suspect]
     Active Substance: FLUOXETINE HYDROCHLORIDE
     Indication: OBSESSIVE-COMPULSIVE DISORDER
     Dosage: 20 MG, DAILY
     Route: 065

REACTIONS (5)
  - Restlessness [Unknown]
  - Ecchymosis [Unknown]
  - Serum serotonin decreased [Unknown]
  - Violence-related symptom [Unknown]
  - Obsessive-compulsive disorder [Unknown]
